FAERS Safety Report 7772209-0 (Version None)
Quarter: 2011Q3

REPORT INFORMATION
  Report Type: 
  Country: None (occurrence: None)
  Receive Date: 20110922
  Receipt Date: 20100826
  Transmission Date: 20111222
  Serious: No
  Sender: FDA-Public Use
  Company Number: US-ASTRAZENECA-2007UW21685

PATIENT
  Age: 14015 Day
  Sex: Male
  Weight: 101.6 kg

DRUGS (22)
  1. HALDOL [Concomitant]
     Dates: start: 19900101
  2. CLONIDINE [Concomitant]
     Dates: start: 20020819
  3. SEROQUEL [Suspect]
     Route: 048
     Dates: start: 20020801, end: 20060201
  4. SEROQUEL [Suspect]
     Route: 048
     Dates: start: 20020801, end: 20060201
  5. SEROQUEL [Suspect]
     Route: 048
     Dates: start: 20020801, end: 20060201
  6. SEROQUEL [Suspect]
     Route: 048
     Dates: start: 20020819
  7. LIPITOR [Concomitant]
     Indication: BLOOD CHOLESTEROL INCREASED
     Dates: start: 20010101
  8. EFFEXOR XR [Concomitant]
     Dates: start: 20020819
  9. SEROQUEL [Suspect]
     Indication: ANXIETY
     Route: 048
     Dates: start: 20020101, end: 20061101
  10. SEROQUEL [Suspect]
     Route: 048
     Dates: start: 20020819
  11. PROTONIX [Concomitant]
     Dates: start: 20020819
  12. SEROQUEL [Suspect]
     Indication: EXTRAPYRAMIDAL DISORDER
     Route: 048
     Dates: start: 20020101, end: 20061101
  13. SEROQUEL [Suspect]
     Route: 048
     Dates: start: 20020819
  14. LIPITOR [Concomitant]
     Indication: HYPERLIPIDAEMIA
     Dates: start: 20010101
  15. SEROQUEL [Suspect]
     Indication: BIPOLAR DISORDER
     Route: 048
     Dates: start: 20020101, end: 20061101
  16. SEROQUEL [Suspect]
     Route: 048
     Dates: start: 20020801, end: 20060201
  17. SEROQUEL [Suspect]
     Route: 048
     Dates: start: 20020819
  18. ZETRA [Concomitant]
     Indication: BLOOD CHOLESTEROL INCREASED
     Dates: start: 20010101
  19. MAXZIDE [Concomitant]
     Dosage: 25 P.O.DAILY
     Route: 048
     Dates: start: 20020819
  20. LOPRESSOR [Concomitant]
     Dates: start: 20020819
  21. SEROQUEL [Suspect]
     Indication: DEPRESSION
     Route: 048
     Dates: start: 20020101, end: 20061101
  22. ZETRA [Concomitant]
     Indication: HYPERLIPIDAEMIA
     Dates: start: 20010101

REACTIONS (4)
  - DIABETES MELLITUS [None]
  - WEIGHT INCREASED [None]
  - DIABETIC COMPLICATION [None]
  - TYPE 2 DIABETES MELLITUS [None]
